FAERS Safety Report 15858590 (Version 4)
Quarter: 2019Q3

REPORT INFORMATION
  Report Type: Report from Study
  Country: JP (occurrence: JP)
  Receive Date: 20190123
  Receipt Date: 20190701
  Transmission Date: 20191004
  Serious: No
  Sender: FDA-Public Use
  Company Number: JP-GILEAD-2018-0381216

PATIENT
  Age: 77 Year
  Sex: Male

DRUGS (7)
  1. TIVICAY [Concomitant]
     Active Substance: DOLUTEGRAVIR SODIUM
     Indication: HIV INFECTION
     Route: 048
     Dates: start: 20170923
  2. BAYASPIRIN [Concomitant]
     Active Substance: ASPIRIN
     Indication: PROPHYLAXIS
     Route: 048
     Dates: start: 20170401
  3. EDURANT [Suspect]
     Active Substance: RILPIVIRINE HYDROCHLORIDE
     Indication: HIV INFECTION
     Dosage: 25 MG, QD
     Route: 048
     Dates: start: 20170310, end: 20170922
  4. ALINAMIN F [Concomitant]
     Active Substance: FURSULTIAMINE HYDROCHLORIDE
     Indication: PROPHYLAXIS
     Route: 048
     Dates: start: 20170401
  5. REBAMIPIDE [Concomitant]
     Active Substance: REBAMIPIDE
     Indication: PROPHYLAXIS
     Route: 048
     Dates: start: 20170926, end: 20171012
  6. EMTRICITABINE/TENOFOVIR ALAFENAMIDE [Suspect]
     Active Substance: EMTRICITABINE\TENOFOVIR
     Indication: HIV INFECTION
     Dosage: 1 DF, 1 QD
     Route: 048
     Dates: start: 20170310
  7. EDURANT [Suspect]
     Active Substance: RILPIVIRINE HYDROCHLORIDE
     Dosage: 25 MG, QD
     Route: 048
     Dates: start: 201210, end: 20150820

REACTIONS (1)
  - Tinea pedis [Not Recovered/Not Resolved]

NARRATIVE: CASE EVENT DATE: 20170616
